FAERS Safety Report 23543099 (Version 1)
Quarter: 2024Q1

REPORT INFORMATION
  Report Type: Spontaneous
  Country: US (occurrence: US)
  Receive Date: 20240220
  Receipt Date: 20240220
  Transmission Date: 20240410
  Serious: No
  Sender: FDA-Public Use
  Company Number: US-AstraZeneca-CH-00568214A

PATIENT
  Age: 75 Year
  Sex: Male
  Weight: 122.45 kg

DRUGS (1)
  1. SOLIRIS [Suspect]
     Active Substance: ECULIZUMAB
     Indication: Myasthenia gravis
     Dosage: 1200 MILLIGRAM, Q2W
     Route: 042
     Dates: start: 20230916

REACTIONS (9)
  - Dysarthria [Recovered/Resolved]
  - Dysphagia [Recovering/Resolving]
  - Mastication disorder [Recovering/Resolving]
  - Dyspnoea exertional [Unknown]
  - Muscular weakness [Recovering/Resolving]
  - Tongue disorder [Unknown]
  - Blood potassium decreased [Unknown]
  - Joint stiffness [Unknown]
  - Fatigue [Recovering/Resolving]

NARRATIVE: CASE EVENT DATE: 20240131
